FAERS Safety Report 8791936 (Version 1)
Quarter: 2012Q4

REPORT INFORMATION
  Report Type: 
  Country: MX (occurrence: MX)
  Receive Date: 20120918
  Receipt Date: 20120918
  Transmission Date: 20130627
  Serious: Yes (Other)
  Sender: FDA-Public Use
  Company Number: MX-BAYER-2012-096629

PATIENT
  Sex: Female

DRUGS (1)
  1. CANESTEN VAGINAL CREAM [Suspect]
     Indication: VAGINAL INFECTION
     Dosage: 1 %, ONCE
     Route: 067

REACTIONS (2)
  - Vaginal discharge [Unknown]
  - Vaginal haemorrhage [Unknown]
